FAERS Safety Report 21438584 (Version 3)
Quarter: 2022Q4

REPORT INFORMATION
  Report Type: Spontaneous
  Country: CN (occurrence: CN)
  Receive Date: 20221011
  Receipt Date: 20221103
  Transmission Date: 20230112
  Serious: Yes (Death, Other)
  Sender: FDA-Public Use
  Company Number: CN-SUN PHARMACEUTICAL INDUSTRIES LTD-2022R1-358133

PATIENT
  Age: 29 Year
  Sex: Female
  Weight: 75 kg

DRUGS (3)
  1. ACETAMINOPHEN [Suspect]
     Active Substance: ACETAMINOPHEN
     Indication: Cholestasis
     Dosage: 0.5 GRAM, QD
     Route: 048
  2. URSODIOL [Suspect]
     Active Substance: URSODIOL
     Indication: Cholestasis
     Dosage: UNK
     Route: 065
  3. ADEMETIONINE [Suspect]
     Active Substance: ADEMETIONINE
     Indication: Cholestasis
     Route: 065

REACTIONS (2)
  - Hepatic failure [Fatal]
  - Exposure during pregnancy [Unknown]
